FAERS Safety Report 14908753 (Version 3)
Quarter: 2018Q3

REPORT INFORMATION
  Report Type: Spontaneous
  Country: US (occurrence: US)
  Receive Date: 20180517
  Receipt Date: 20180812
  Transmission Date: 20181010
  Serious: No
  Sender: FDA-Public Use
  Company Number: US-JNJFOC-20180429219

PATIENT
  Age: 71 Year
  Sex: Female
  Weight: 52.16 kg

DRUGS (15)
  1. LYRICA [Concomitant]
     Active Substance: PREGABALIN
     Indication: PAIN
     Route: 048
  2. LIPITOR [Concomitant]
     Active Substance: ATORVASTATIN CALCIUM
     Indication: BLOOD CHOLESTEROL
     Route: 065
  3. PROTONIX [Concomitant]
     Active Substance: PANTOPRAZOLE SODIUM
     Indication: GASTRIC DISORDER
     Route: 048
  4. BIOTIN [Concomitant]
     Active Substance: BIOTIN
     Indication: PRODUCT USED FOR UNKNOWN INDICATION
     Dosage: 5000 MCG?100 MG?50 MG
     Route: 048
  5. VITAMIN E [Concomitant]
     Active Substance: .ALPHA.-TOCOPHEROL
     Indication: PRODUCT USED FOR UNKNOWN INDICATION
     Dosage: 400 UNITS
     Route: 048
  6. WOMENS ROGAINE UNSCENTED [Suspect]
     Active Substance: MINOXIDIL
     Indication: ALOPECIA
     Route: 061
  7. DESYREL [Concomitant]
     Active Substance: TRAZODONE HYDROCHLORIDE
     Indication: SLEEP DISORDER THERAPY
     Dosage: AT BEDTIME
     Route: 048
  8. RELAFEN [Concomitant]
     Active Substance: NABUMETONE
     Indication: PRODUCT USED FOR UNKNOWN INDICATION
     Route: 048
  9. CYANOCOBALAMIN. [Concomitant]
     Active Substance: CYANOCOBALAMIN
     Indication: PRODUCT USED FOR UNKNOWN INDICATION
     Route: 048
  10. WOMENS ROGAINE UNSCENTED [Suspect]
     Active Substance: MINOXIDIL
     Route: 061
  11. CALCIUM 600+D3 [Concomitant]
     Active Substance: CALCIUM CARBONATE\VITAMIN D
     Indication: PRODUCT USED FOR UNKNOWN INDICATION
     Route: 048
  12. NORCO [Concomitant]
     Active Substance: ACETAMINOPHEN\HYDROCODONE BITARTRATE
     Indication: PAIN
     Route: 048
  13. PRENATAL S [Concomitant]
     Indication: PRODUCT USED FOR UNKNOWN INDICATION
     Route: 048
  14. CELEXA [Concomitant]
     Active Substance: CITALOPRAM HYDROBROMIDE
     Indication: NERVOUS SYSTEM DISORDER
     Route: 048
  15. CHOLECALCIFEROL [Concomitant]
     Active Substance: CHOLECALCIFEROL
     Indication: PRODUCT USED FOR UNKNOWN INDICATION
     Dosage: 10,000
     Route: 048

REACTIONS (2)
  - Overdose [Unknown]
  - Alopecia [Not Recovered/Not Resolved]
